FAERS Safety Report 16250425 (Version 1)
Quarter: 2019Q2

REPORT INFORMATION
  Report Type: Spontaneous
  Country: US (occurrence: US)
  Receive Date: 20190429
  Receipt Date: 20190429
  Transmission Date: 20190711
  Serious: No
  Sender: FDA-Public Use
  Company Number: US-BAYER-2019-083449

PATIENT
  Age: 61 Year
  Sex: Female

DRUGS (1)
  1. BETASERON [Suspect]
     Active Substance: INTERFERON BETA-1B
     Indication: MULTIPLE SCLEROSIS
     Dosage: UNK
     Route: 058
     Dates: start: 201806

REACTIONS (5)
  - Cough [None]
  - Chest discomfort [None]
  - Gastrooesophageal reflux disease [None]
  - Abdominal distension [None]
  - Choking sensation [None]

NARRATIVE: CASE EVENT DATE: 20190423
